FAERS Safety Report 12545617 (Version 2)
Quarter: 2016Q3

REPORT INFORMATION
  Report Type: Spontaneous
  Country: US (occurrence: US)
  Receive Date: 20160711
  Receipt Date: 20160722
  Transmission Date: 20161109
  Serious: Yes (Death, Hospitalization)
  Sender: FDA-Public Use
  Company Number: US-JNJFOC-20160707124

PATIENT
  Sex: Male
  Weight: 140.62 kg

DRUGS (2)
  1. LEVAQUIN [Suspect]
     Active Substance: LEVOFLOXACIN
     Indication: URINARY TRACT INFECTION
     Route: 048
     Dates: start: 2016, end: 2016
  2. INVOKANA [Suspect]
     Active Substance: CANAGLIFLOZIN
     Indication: DIABETES MELLITUS
     Route: 048
     Dates: start: 2014, end: 20160418

REACTIONS (13)
  - Arrhythmia [Unknown]
  - Infected skin ulcer [Unknown]
  - Blood potassium increased [Unknown]
  - Nasopharyngitis [Recovered/Resolved]
  - Tremor [Recovered/Resolved]
  - Weight increased [Unknown]
  - Renal injury [Fatal]
  - Drug-induced liver injury [Unknown]
  - Respiratory failure [Unknown]
  - Dehydration [Unknown]
  - Urinary tract infection [Unknown]
  - Chromaturia [Unknown]
  - Hypotension [Unknown]

NARRATIVE: CASE EVENT DATE: 2014
